FAERS Safety Report 20201550 (Version 4)
Quarter: 2022Q2

REPORT INFORMATION
  Report Type: Report from Study
  Country: MX (occurrence: MX)
  Receive Date: 20211217
  Receipt Date: 20220502
  Transmission Date: 20220720
  Serious: Yes (Hospitalization, Other)
  Sender: FDA-Public Use
  Company Number: MX-NOVARTISPH-NVSC2021MX286483

PATIENT
  Age: 62 Year
  Sex: Female
  Weight: 71 kg

DRUGS (2)
  1. TASIGNA [Suspect]
     Active Substance: NILOTINIB
     Indication: Leukaemia
     Dosage: UNK, QD
     Route: 048
  2. TASIGNA [Suspect]
     Active Substance: NILOTINIB
     Indication: Chronic myeloid leukaemia

REACTIONS (25)
  - Blood glucose increased [Recovering/Resolving]
  - Diabetes mellitus [Unknown]
  - Dry mouth [Unknown]
  - COVID-19 [Recovered/Resolved with Sequelae]
  - Oxygen consumption decreased [Unknown]
  - Haemorrhage [Unknown]
  - Gallbladder disorder [Unknown]
  - Depressed mood [Unknown]
  - Feeling abnormal [Unknown]
  - Gastrooesophageal reflux disease [Unknown]
  - Blood glucose decreased [Unknown]
  - Vitamin B12 deficiency [Unknown]
  - Hypertension [Unknown]
  - Decreased appetite [Unknown]
  - Nausea [Unknown]
  - Fatigue [Not Recovered/Not Resolved]
  - Headache [Unknown]
  - Dizziness [Unknown]
  - Arthralgia [Unknown]
  - Pain in extremity [Not Recovered/Not Resolved]
  - Plantar fasciitis [Unknown]
  - Pain [Unknown]
  - Fall [Unknown]
  - Tremor [Unknown]
  - Heart rate decreased [Unknown]

NARRATIVE: CASE EVENT DATE: 20211231
